FAERS Safety Report 11209146 (Version 1)
Quarter: 2015Q2

REPORT INFORMATION
  Report Type: Spontaneous
  Country: CH (occurrence: CH)
  Receive Date: 20150622
  Receipt Date: 20150622
  Transmission Date: 20150821
  Serious: Yes (Death, Hospitalization, Other)
  Sender: FDA-Public Use
  Company Number: PHHY2015CH073461

PATIENT
  Age: 81 Year
  Sex: Female

DRUGS (2)
  1. HEPARIN [Suspect]
     Active Substance: HEPARIN SODIUM
     Indication: ATRIAL FIBRILLATION
  2. FONDAPARINUX [Suspect]
     Active Substance: FONDAPARINUX
     Indication: ATRIAL FIBRILLATION

REACTIONS (8)
  - Hypotension [Recovered/Resolved]
  - Pyrexia [Recovered/Resolved]
  - Adrenal insufficiency [Recovered/Resolved]
  - Tachycardia [Recovered/Resolved]
  - Thrombocytopenia [Recovered/Resolved]
  - Splenic infarction [Recovered/Resolved]
  - Death [Fatal]
  - Pulmonary embolism [Recovered/Resolved]
